FAERS Safety Report 6449839-1 (Version None)
Quarter: 2009Q4

REPORT INFORMATION
  Report Type: 
  Country: None (occurrence: None)
  Receive Date: 20091120
  Receipt Date: 20091112
  Transmission Date: 20100525
  Serious: Yes (Life-Threatening, Hospitalization)
  Sender: FDA-Public Use
  Company Number: JP-JNJCH-2009026338

PATIENT
  Sex: Female

DRUGS (3)
  1. CETIRIZINE HYDROCHLORIDE [Suspect]
     Indication: PRURITUS
     Dosage: TEXT:10 MG
     Route: 048
     Dates: start: 20090601, end: 20090928
  2. FUROSEMIDE [Concomitant]
     Indication: CARDIAC FAILURE
     Dosage: TEXT:40 MG
     Route: 048
  3. VALSARTAN [Concomitant]
     Indication: CARDIAC FAILURE
     Dosage: TEXT:80 MG
     Route: 048
     Dates: end: 20090928

REACTIONS (2)
  - ELECTROCARDIOGRAM QT PROLONGED [None]
  - TORSADE DE POINTES [None]
